FAERS Safety Report 7211087-5 (Version None)
Quarter: 2010Q4

REPORT INFORMATION
  Report Type: 
  Country: None (occurrence: None)
  Receive Date: 20101223
  Receipt Date: 20101217
  Transmission Date: 20110411
  Serious: Yes (Hospitalization)
  Sender: FDA-Public Use
  Company Number: TPA2010A06252

PATIENT
  Age: 64 Year
  Sex: Female
  Weight: 108.8633 kg

DRUGS (12)
  1. ULORIC [Suspect]
     Indication: GOUT
     Dosage: PER ORAL
     Route: 048
     Dates: start: 20101021
  2. DIOVAN [Concomitant]
  3. POTASSIUM (POTASSIUM) [Concomitant]
  4. DEMADEX [Concomitant]
  5. PREDNISONE TAB [Concomitant]
  6. METHOTREXATE SODIUM [Concomitant]
  7. CALCIUM WITH D (ERGOCALCIFEROL, CALCIUM PHOSPHATE, CALCIUM SODIUM LACT [Concomitant]
  8. ADVIL LIQUI-GELS [Concomitant]
  9. VICODIN [Concomitant]
  10. ASPIRIN [Concomitant]
  11. PLAVIX [Concomitant]
  12. ACTONEL [Concomitant]

REACTIONS (5)
  - CHEST PAIN [None]
  - DEEP VEIN THROMBOSIS [None]
  - HAEMATURIA [None]
  - MYOCARDIAL ISCHAEMIA [None]
  - PULMONARY EMBOLISM [None]
